FAERS Safety Report 9944905 (Version 1)
Quarter: 2014Q1

REPORT INFORMATION
  Report Type: Report from Study
  Country: US (occurrence: US)
  Receive Date: 20140303
  Receipt Date: 20140303
  Transmission Date: 20141002
  Serious: No
  Sender: FDA-Public Use
  Company Number: US-ABBVIE-13P-163-1051920-00

PATIENT
  Age: 27 Year
  Sex: Female

DRUGS (4)
  1. HUMIRA [Suspect]
     Indication: PSORIASIS
     Route: 058
     Dates: start: 20130201, end: 20130201
  2. HUMIRA [Suspect]
     Route: 058
     Dates: start: 20130215, end: 20130215
  3. HUMIRA [Suspect]
     Route: 058
  4. MIRENA [Concomitant]
     Indication: CONTRACEPTION

REACTIONS (2)
  - Drug administration error [Unknown]
  - Inappropriate schedule of drug administration [Unknown]
